FAERS Safety Report 8598421-9 (Version None)
Quarter: 2012Q3

REPORT INFORMATION
  Report Type: 
  Country: None (occurrence: None)
  Receive Date: 20120816
  Receipt Date: 20120807
  Transmission Date: 20120928
  Serious: Yes (Hospitalization)
  Sender: FDA-Public Use
  Company Number: DE-ROCHE-1022270

PATIENT
  Age: 61 Year
  Sex: Female
  Weight: 59 kg

DRUGS (16)
  1. PREDNISOLONE [Concomitant]
     Dates: start: 20091001
  2. MICARDIS [Concomitant]
     Route: 048
     Dates: start: 20091001
  3. MOXONIDIN [Concomitant]
     Dates: start: 20091001
  4. PANTOPRAZOLE [Concomitant]
     Dates: start: 20091001
  5. FOLIC ACID [Concomitant]
     Route: 048
  6. DICLOFENAC [Concomitant]
     Dosage: PRN
     Route: 048
  7. ALLEGRO (GERMANY) [Concomitant]
  8. METHOTREXATE [Suspect]
     Indication: PRODUCT USED FOR UNKNOWN INDICATION
     Route: 058
     Dates: start: 20090901
  9. BISOPROLOL FUMARATE [Concomitant]
     Route: 048
  10. TORSEMIDE [Concomitant]
     Route: 048
     Dates: start: 20091001
  11. MINOXIDIL [Concomitant]
     Route: 048
  12. RASILEZ [Concomitant]
  13. DUSPATAL [Concomitant]
  14. DEKRISTOL [Concomitant]
     Dates: start: 20101026
  15. ACTEMRA [Suspect]
     Indication: RHEUMATOID ARTHRITIS
     Route: 042
     Dates: start: 20110930, end: 20111116
  16. CALCILAC [Concomitant]
     Dates: start: 20110126

REACTIONS (4)
  - PYREXIA [None]
  - PYONEPHROSIS [None]
  - CALCULUS URETERIC [None]
  - URINARY TRACT INFECTION [None]
